FAERS Safety Report 17847942 (Version 2)
Quarter: 2020Q2

REPORT INFORMATION
  Report Type: Spontaneous
  Country: IT (occurrence: IT)
  Receive Date: 20200601
  Receipt Date: 20200617
  Transmission Date: 20200714
  Serious: No
  Sender: FDA-Public Use
  Company Number: IT-ALEXION-A202005756

PATIENT
  Age: 50 Year
  Sex: Male
  Weight: 100 kg

DRUGS (3)
  1. SOLIRIS [Suspect]
     Active Substance: ECULIZUMAB
     Indication: PAROXYSMAL NOCTURNAL HAEMOGLOBINURIA
     Dosage: 900 MG, QW 5 WEEKLY DOSES
     Route: 042
     Dates: start: 20110111
  2. SOLIRIS [Suspect]
     Active Substance: ECULIZUMAB
     Dosage: ONE DOSE, Q2W
     Route: 042
  3. SOLIRIS [Suspect]
     Active Substance: ECULIZUMAB
     Dosage: UNK, SINGLE
     Route: 042
     Dates: start: 20200424

REACTIONS (2)
  - Chest pain [Unknown]
  - Breast pain [Unknown]

NARRATIVE: CASE EVENT DATE: 20200417
